FAERS Safety Report 17069336 (Version 2)
Quarter: 2020Q1

REPORT INFORMATION
  Report Type: Report from Study
  Country: CO (occurrence: CO)
  Receive Date: 20191125
  Receipt Date: 20200316
  Transmission Date: 20200409
  Serious: Yes (Hospitalization)
  Sender: FDA-Public Use
  Company Number: CO-ROCHE-2438747

PATIENT
  Sex: Male

DRUGS (2)
  1. XELODA [Suspect]
     Active Substance: CAPECITABINE
     Indication: PRODUCT USED FOR UNKNOWN INDICATION
     Dosage: PILLS
     Route: 048
  2. AVASTIN [Suspect]
     Active Substance: BEVACIZUMAB
     Indication: PRODUCT USED FOR UNKNOWN INDICATION
     Route: 042

REACTIONS (9)
  - Immunodeficiency [Unknown]
  - Diarrhoea [Unknown]
  - Blood electrolytes decreased [Unknown]
  - Decreased appetite [Unknown]
  - Infection [Unknown]
  - Localised infection [Unknown]
  - Pyrexia [Unknown]
  - Vomiting [Unknown]
  - Blood potassium decreased [Unknown]
